FAERS Safety Report 4902866-5 (Version None)
Quarter: 2006Q1

REPORT INFORMATION
  Report Type: 
  Country: None (occurrence: None)
  Receive Date: 20060207
  Receipt Date: 20060111
  Transmission Date: 20060701
  Serious: Yes (Hospitalization)
  Sender: FDA-Public Use
  Company Number: JP-BOEHRINGER INGELHEIM PHARMACEUTICALS, INC.-2006-BP-00705NB

PATIENT
  Age: 83 Year
  Sex: Male

DRUGS (9)
  1. MICARDIS [Suspect]
     Indication: HYPERTENSION
     Route: 048
     Dates: start: 20051220, end: 20051229
  2. PL (NON-PYRINE PREPARATION) [Suspect]
     Route: 048
     Dates: start: 20051220, end: 20051229
  3. NIVADIL [Concomitant]
     Route: 048
     Dates: start: 19960410
  4. THEO-SLOW (THEOPHYLLINE) [Concomitant]
     Route: 048
     Dates: start: 19980110
  5. LENDORMIN [Concomitant]
     Route: 048
     Dates: start: 19980401
  6. MUCOSERUM [Concomitant]
     Route: 048
     Dates: start: 20020814
  7. TOUGHMAC E [Concomitant]
     Route: 048
     Dates: start: 20021122
  8. SELBEX [Concomitant]
     Route: 048
     Dates: start: 20021122
  9. GASMOTIN [Concomitant]
     Route: 048
     Dates: start: 20021122

REACTIONS (1)
  - TRANSAMINASES INCREASED [None]
